FAERS Safety Report 15613916 (Version 2)
Quarter: 2019Q1

REPORT INFORMATION
  Report Type: Report from Study
  Country: US (occurrence: US)
  Receive Date: 20181113
  Receipt Date: 20190207
  Transmission Date: 20190417
  Serious: Yes (Death, Hospitalization)
  Sender: FDA-Public Use
  Company Number: US-ACTELION-A-NJ2017-153791

PATIENT
  Age: 79 Year
  Sex: Female
  Weight: 63.39 kg

DRUGS (5)
  1. UPTRAVI [Suspect]
     Active Substance: SELEXIPAG
     Dosage: 800 MCG, BID
     Route: 048
  2. UPTRAVI [Suspect]
     Active Substance: SELEXIPAG
     Indication: PULMONARY HYPERTENSION
     Dosage: 200 MCG, BID
     Route: 048
  3. ADEMPAS [Concomitant]
     Active Substance: RIOCIGUAT
  4. WARFARIN [Concomitant]
     Active Substance: WARFARIN
  5. UPTRAVI [Suspect]
     Active Substance: SELEXIPAG
     Dosage: 600 MCG, BID
     Route: 048

REACTIONS (17)
  - Impaired quality of life [Unknown]
  - Vomiting [Unknown]
  - Weight decreased [Unknown]
  - Headache [Unknown]
  - Abdominal discomfort [Unknown]
  - Fall [Unknown]
  - Death [Fatal]
  - Product dose omission [Unknown]
  - Back injury [Unknown]
  - Nasopharyngitis [Unknown]
  - Feeling cold [Unknown]
  - Pain in jaw [Unknown]
  - Fatigue [Unknown]
  - Migraine [Unknown]
  - Discomfort [Unknown]
  - Nausea [Unknown]
  - Blood potassium increased [Unknown]

NARRATIVE: CASE EVENT DATE: 20170507
